FAERS Safety Report 9249258 (Version 1)
Quarter: 2013Q2

REPORT INFORMATION
  Report Type: Spontaneous
  Country: US (occurrence: US)
  Receive Date: 20130423
  Receipt Date: 20130423
  Transmission Date: 20140414
  Serious: No
  Sender: FDA-Public Use
  Company Number: US-BAYER-2013-050177

PATIENT
  Sex: Female

DRUGS (2)
  1. OCELLA [Suspect]
  2. LAMOTRIGIN [Concomitant]
     Dosage: UNK

REACTIONS (1)
  - Labelled drug-drug interaction medication error [None]
